FAERS Safety Report 10444013 (Version 1)
Quarter: 2014Q3

REPORT INFORMATION
  Report Type: Spontaneous
  Country: US (occurrence: US)
  Receive Date: 20140910
  Receipt Date: 20140910
  Transmission Date: 20150326
  Serious: No
  Sender: FDA-Public Use
  Company Number: US-BAYER-2014-132325

PATIENT
  Age: 69 Year
  Sex: Male
  Weight: 81.63 kg

DRUGS (5)
  1. IRON [IRON] [Concomitant]
  2. LORAZEPAM. [Concomitant]
     Active Substance: LORAZEPAM
  3. ALEVE [Suspect]
     Active Substance: NAPROXEN SODIUM
     Indication: ARTHRALGIA
  4. ALEVE [Suspect]
     Active Substance: NAPROXEN SODIUM
     Indication: PAIN IN EXTREMITY
     Dosage: UNK UNK, PRN
     Route: 048
     Dates: start: 201405
  5. METOPROLOL [Concomitant]
     Active Substance: METOPROLOL

REACTIONS (3)
  - Therapeutic response changed [None]
  - Incorrect drug administration duration [None]
  - Extra dose administered [None]

NARRATIVE: CASE EVENT DATE: 2014
